FAERS Safety Report 6255428-4 (Version None)
Quarter: 2009Q3

REPORT INFORMATION
  Report Type: 
  Country: None (occurrence: None)
  Receive Date: 20090702
  Receipt Date: 20090624
  Transmission Date: 20100115
  Serious: Yes (Hospitalization)
  Sender: FDA-Public Use
  Company Number: PHHO2009DE07833

PATIENT
  Sex: Male
  Weight: 73.7 kg

DRUGS (2)
  1. RAD 666 RAD+TAB [Suspect]
     Indication: HEPATIC CANCER METASTATIC
     Dosage: 5 MG/DAY
     Route: 048
     Dates: start: 20090406
  2. AVASTIN COMP-AVA+ [Suspect]
     Indication: HEPATIC CANCER METASTATIC
     Dosage: 5 MG/KG, UNK
     Route: 042
     Dates: start: 20090406

REACTIONS (4)
  - JAUNDICE [None]
  - NAUSEA [None]
  - OEDEMA PERIPHERAL [None]
  - VOMITING [None]
